FAERS Safety Report 15493866 (Version 2)
Quarter: 2018Q4

REPORT INFORMATION
  Report Type: Report from Study
  Country: US (occurrence: US)
  Receive Date: 20181012
  Receipt Date: 20181113
  Transmission Date: 20190205
  Serious: Yes (Hospitalization, Other)
  Sender: FDA-Public Use
  Company Number: US-BRISTOL-MYERS SQUIBB COMPANY-BMS-2018-093036

PATIENT
  Age: 63 Year
  Sex: Male

DRUGS (2)
  1. NIVOLUMAB [Suspect]
     Active Substance: NIVOLUMAB
     Indication: GLIOBLASTOMA
     Dosage: 1 MG/KG, Q2WK
     Route: 042
     Dates: start: 20180820
  2. VELEDIMEX [Suspect]
     Active Substance: VELEDIMEX
     Indication: GLIOBLASTOMA
     Dosage: 10 MG, QD
     Route: 048
     Dates: end: 20180910

REACTIONS (1)
  - Brain oedema [Recovered/Resolved]

NARRATIVE: CASE EVENT DATE: 20180924
